FAERS Safety Report 19093986 (Version 9)
Quarter: 2021Q2

REPORT INFORMATION
  Report Type: Report from Study
  Country: CN (occurrence: CN)
  Receive Date: 20210405
  Receipt Date: 20210628
  Transmission Date: 20210717
  Serious: Yes (Hospitalization)
  Sender: FDA-Public Use
  Company Number: CN-ROCHE-2796984

PATIENT
  Age: 68 Year
  Sex: Male
  Weight: 63 kg

DRUGS (70)
  1. FUROSEMIDE. [Concomitant]
     Active Substance: FUROSEMIDE
     Dates: start: 20210401
  2. ATORVASTATIN CALCIUM. [Concomitant]
     Active Substance: ATORVASTATIN CALCIUM
     Route: 048
     Dates: start: 20210320, end: 20210324
  3. LANSOPRAZOLE. [Concomitant]
     Active Substance: LANSOPRAZOLE
     Route: 048
     Dates: start: 20210320, end: 20210326
  4. SPIRONOLACTONE. [Concomitant]
     Active Substance: SPIRONOLACTONE
     Route: 048
     Dates: start: 20210326, end: 20210327
  5. DIPHENHYDRAMINE HYDROCHLORIDE. [Concomitant]
     Active Substance: DIPHENHYDRAMINE HYDROCHLORIDE
     Dates: start: 20210323, end: 20210323
  6. RHG?CSF (UNK INGREDIENTS) [Concomitant]
     Dosage: DOSE? 300 UG
     Route: 058
     Dates: start: 20210324, end: 20210329
  7. ISOSORBIDE MONONITRATE. [Concomitant]
     Active Substance: ISOSORBIDE MONONITRATE
     Dates: start: 20210401
  8. FUROSEMIDE. [Concomitant]
     Active Substance: FUROSEMIDE
     Dates: start: 20210316, end: 20210316
  9. FUROSEMIDE. [Concomitant]
     Active Substance: FUROSEMIDE
     Dates: start: 20210408, end: 20210408
  10. ASPIRIN ENTERIC?COATED [Concomitant]
     Route: 048
     Dates: start: 20210320, end: 20210320
  11. POTASSIUM CHLORIDE. [Concomitant]
     Active Substance: POTASSIUM CHLORIDE
     Dosage: SUSTAINED?RELEASE TABLETS
     Dates: start: 20210319, end: 20210326
  12. POTASSIUM CHLORIDE. [Concomitant]
     Active Substance: POTASSIUM CHLORIDE
     Dosage: SUSTAINED?RELEASE TABLETS
     Dates: start: 20210316, end: 20210317
  13. IMIPENEM AND CILASTATIN SODIUM [Concomitant]
     Active Substance: CILASTATIN SODIUM\IMIPENEM
     Dates: start: 20210324, end: 20210330
  14. BACILLUS LICHENIFORMIS CAPSULE,LIVE [Concomitant]
     Dates: start: 20210325, end: 20210325
  15. DEXAMETHASONE SODIUM PHOSPHATE. [Concomitant]
     Active Substance: DEXAMETHASONE SODIUM PHOSPHATE
     Dates: start: 20210407, end: 20210407
  16. RECOMBINANT HUMAN THROMBOPOIETIN [Concomitant]
     Active Substance: THROMBOPOIETIN
     Route: 058
     Dates: start: 20210329, end: 20210331
  17. COMPOUND LIQUORICE [Concomitant]
     Dates: start: 20210407, end: 20210407
  18. ISOSORBIDE MONONITRATE. [Concomitant]
     Active Substance: ISOSORBIDE MONONITRATE
     Route: 048
     Dates: start: 20210320, end: 20210320
  19. FUROSEMIDE. [Concomitant]
     Active Substance: FUROSEMIDE
     Route: 065
     Dates: start: 20210316, end: 20210316
  20. FUROSEMIDE. [Concomitant]
     Active Substance: FUROSEMIDE
     Dates: start: 20210319, end: 20210319
  21. TANSULOSINA [Concomitant]
     Indication: BENIGN PROSTATIC HYPERPLASIA
     Dosage: SUSTAINED RELEASE CAPSULE
     Route: 048
     Dates: start: 20210322, end: 20210322
  22. DEXAMETHASONE SODIUM PHOSPHATE. [Concomitant]
     Active Substance: DEXAMETHASONE SODIUM PHOSPHATE
     Dates: start: 20210316, end: 20210316
  23. FINASTERIDE. [Concomitant]
     Active Substance: FINASTERIDE
     Indication: BENIGN PROSTATIC HYPERPLASIA
     Dates: start: 20210317, end: 20210317
  24. METHOCLOPRAMIDE [Concomitant]
     Active Substance: METOCLOPRAMIDE HYDROCHLORIDE
     Dates: start: 20210324, end: 20210325
  25. CEFUROXIME. [Concomitant]
     Active Substance: CEFUROXIME
     Dosage: PLUG CRUNCHING OF CORNFLAKES
     Route: 048
     Dates: start: 20210319, end: 20210321
  26. CEFUROXIME. [Concomitant]
     Active Substance: CEFUROXIME
     Dosage: PLUG CRUNCHING OF CORNFLAKES
     Route: 048
     Dates: start: 20210325, end: 20210325
  27. RHG?CSF (UNK INGREDIENTS) [Concomitant]
     Dosage: DOSE? 150 UG
     Route: 058
     Dates: start: 20210326, end: 20210326
  28. RECOMBINANT HUMAN THROMBOPOIETIN [Concomitant]
     Active Substance: THROMBOPOIETIN
     Dates: start: 20210401, end: 20210403
  29. LACTULOSE. [Concomitant]
     Active Substance: LACTULOSE
     Route: 048
     Dates: start: 20210318, end: 20210318
  30. PLACEBO [Suspect]
     Active Substance: UNSPECIFIED INGREDIENT
     Indication: SMALL CELL LUNG CANCER
     Dosage: ON 16/MAR/2021, HE RECEIVED MOST RECENT DOSE OF BLINDED MTIG 7192A PRIOR TO EVENT ONSET.
     Route: 042
     Dates: start: 20210316
  31. ATEZOLIZUMAB. [Suspect]
     Active Substance: ATEZOLIZUMAB
     Indication: SMALL CELL LUNG CANCER
     Dosage: ON 16/MAR/2021, HE RECEIVED MOST RECENT DOSE OF (1200 MG) OF ATEZOLIZUMAB PRIOR TO EVENT ONSET.?ON 0
     Route: 042
     Dates: start: 20210316
  32. ATEZOLIZUMAB. [Suspect]
     Active Substance: ATEZOLIZUMAB
     Indication: MYELOSUPPRESSION
  33. FUROSEMIDE. [Concomitant]
     Active Substance: FUROSEMIDE
     Dates: start: 20210407, end: 20210407
  34. OXYCODONE [Concomitant]
     Active Substance: OXYCODONE
     Indication: ANALGESIC THERAPY
     Dates: start: 20210315, end: 20210326
  35. SPIRONOLACTONE. [Concomitant]
     Active Substance: SPIRONOLACTONE
     Dates: start: 20210402
  36. NIFEDIPINE. [Concomitant]
     Active Substance: NIFEDIPINE
     Dates: start: 20210317, end: 20210317
  37. CEFUROXIME. [Concomitant]
     Active Substance: CEFUROXIME
     Dosage: PLUG CRUNCHING OF CORNFLAKES
     Route: 048
     Dates: start: 20210327, end: 20210327
  38. ESTAZOLAM. [Concomitant]
     Active Substance: ESTAZOLAM
     Dates: start: 20210324, end: 20210324
  39. RECOMBINANT HUMAN GRANULOCYTE COLONY STIMULATING FACTOR [Concomitant]
     Active Substance: GRANULOCYTE COLONY-STIMULATING FACTOR NOS
     Dosage: DOSE? 150 UG
     Route: 058
     Dates: start: 20210326, end: 20210326
  40. PROMETHAZINE HYDROCHLORIDE. [Concomitant]
     Active Substance: PROMETHAZINE HYDROCHLORIDE
     Dates: start: 20210328, end: 20210328
  41. DAPAGLIFLOZIN. [Concomitant]
     Active Substance: DAPAGLIFLOZIN
     Indication: BLOOD GLUCOSE DECREASED
     Dates: start: 20210402
  42. ZOLPIDEM TARTRATE. [Concomitant]
     Active Substance: ZOLPIDEM TARTRATE
     Dates: start: 20210310, end: 20210324
  43. NIFEDIPINE SUSTAINED RELEASE TABLETS (I) [Concomitant]
     Dates: start: 20210407, end: 20210407
  44. LANSOPRAZOLE. [Concomitant]
     Active Substance: LANSOPRAZOLE
     Dates: start: 20210320, end: 20210320
  45. GLUTATHIONE [Concomitant]
     Active Substance: GLUTATHIONE
     Dates: start: 20210324, end: 20210329
  46. APREPITANT. [Concomitant]
     Active Substance: APREPITANT
     Dates: start: 20210407, end: 20210409
  47. NITROGLYCERIN. [Concomitant]
     Active Substance: NITROGLYCERIN
     Dates: start: 20210319, end: 20210319
  48. VALSARTAN. [Concomitant]
     Active Substance: VALSARTAN
     Dates: start: 20210407, end: 20210407
  49. CODEINE PHOSPHATE [Concomitant]
     Active Substance: CODEINE PHOSPHATE
     Dates: start: 20210407, end: 20210407
  50. ISOSORBIDE MONONITRATE. [Concomitant]
     Active Substance: ISOSORBIDE MONONITRATE
     Route: 048
     Dates: start: 20210320, end: 20210324
  51. CARBOPLATIN. [Suspect]
     Active Substance: CARBOPLATIN
     Indication: SMALL CELL LUNG CANCER
     Dosage: ON 16/MAR/2021, HE RECEIVED MOST RECENT DOSE OF (540 MG) OF CARBOPLATIN PRIOR TO EVENT ONSET.?ON 06/
     Route: 042
     Dates: start: 20210316
  52. TANSULOSINA [Concomitant]
     Dosage: SUSTAINED RELEASE CAPSULE
     Dates: start: 20210318, end: 20210318
  53. POLYENE PHOSPHATIDYLCHOLINE [Concomitant]
     Active Substance: PHOSPHOLIPID
     Dates: start: 20210324, end: 20210329
  54. SPIRONOLACTONE. [Concomitant]
     Active Substance: SPIRONOLACTONE
     Route: 048
     Dates: start: 20210320, end: 20210322
  55. DIFORMIN [Concomitant]
     Active Substance: METFORMIN HYDROCHLORIDE
     Dates: start: 2013
  56. GLIMEPIRIDE. [Concomitant]
     Active Substance: GLIMEPIRIDE
     Dates: start: 2013
  57. VALSARTAN. [Concomitant]
     Active Substance: VALSARTAN
     Dates: start: 20210402, end: 20210403
  58. CODEINE PHOSPHATE [Concomitant]
     Active Substance: CODEINE PHOSPHATE
     Dates: start: 20210409, end: 20210409
  59. NIFEDIPINE SUSTAINED RELEASE TABLETS (I) [Concomitant]
     Indication: BLOOD PRESSURE MEASUREMENT
     Dates: start: 20210317, end: 20210324
  60. ASPIRIN ENTERIC?COATED [Concomitant]
     Route: 048
     Dates: start: 20210319, end: 20210324
  61. SPIRONOLACTONE. [Concomitant]
     Active Substance: SPIRONOLACTONE
     Dates: start: 20210328, end: 20210401
  62. APREPITANT. [Concomitant]
     Active Substance: APREPITANT
     Dates: start: 20210316, end: 20210318
  63. TROPISETRON HYDROCHLORIDE [Concomitant]
     Active Substance: TROPISETRON HYDROCHLORIDE
     Dates: start: 20210407, end: 20210409
  64. NIFEDIPINE. [Concomitant]
     Active Substance: NIFEDIPINE
     Dosage: SUSTAIN?RELEASED TABLET
     Dates: start: 20210407, end: 20210407
  65. CEFUROXIME. [Concomitant]
     Active Substance: CEFUROXIME
     Dosage: PLUG CRUNCHING OF CORNFLAKES
     Route: 048
     Dates: start: 20210322, end: 20210322
  66. ETOPOSIDE. [Suspect]
     Active Substance: ETOPOSIDE
     Indication: SMALL CELL LUNG CANCER
     Dosage: ON 18/MAR/2021, HE RECEIVED MOST RECENT DOSE OF (160 MG) OF ETOPOSIDE PRIOR TO EVENT ONSET.?ON 08/MA
     Route: 042
     Dates: start: 20210316
  67. BACILLUS LICHENIFORMIS CAPSULE,LIVE [Concomitant]
     Dates: start: 20210325, end: 20210329
  68. TROPISETRON HYDROCHLORIDE [Concomitant]
     Active Substance: TROPISETRON HYDROCHLORIDE
     Dates: start: 20210316, end: 20210318
  69. METHOCLOPRAMIDE [Concomitant]
     Active Substance: METOCLOPRAMIDE HYDROCHLORIDE
     Dates: start: 20210319, end: 20210319
  70. MACROPHAGE COLONY?STIMULATING FACTOR FOR INJECTION (UNK INGREDIENTS) [Concomitant]
     Dates: start: 20210324, end: 20210326

REACTIONS (4)
  - Cardiac failure [Recovered/Resolved]
  - Urinary retention [Recovered/Resolved]
  - Myelosuppression [Not Recovered/Not Resolved]
  - Hyperthyroidism [Not Recovered/Not Resolved]

NARRATIVE: CASE EVENT DATE: 20210319
